FAERS Safety Report 22964824 (Version 4)
Quarter: 2023Q4

REPORT INFORMATION
  Report Type: Report from Study
  Country: CA (occurrence: CA)
  Receive Date: 20230921
  Receipt Date: 20231211
  Transmission Date: 20240109
  Serious: Yes (Other)
  Sender: FDA-Public Use
  Company Number: CA-SAMSUNG BIOEPIS-SB-2023-02013

PATIENT
  Age: 53 Year
  Sex: Female
  Weight: 100.2 kg

DRUGS (4)
  1. HADLIMA [Suspect]
     Active Substance: ADALIMUMAB-BWWD
     Indication: Ankylosing spondylitis
     Dosage: 40 MG/0.8 ML;
     Route: 065
     Dates: start: 20210707
  2. HADLIMA [Suspect]
     Active Substance: ADALIMUMAB-BWWD
     Dosage: 40 MG/0.8ML;
     Route: 065
     Dates: start: 20231025
  3. MESALAMINE [Suspect]
     Active Substance: MESALAMINE
     Indication: Product used for unknown indication
     Route: 065
  4. MESALAMINE [Suspect]
     Active Substance: MESALAMINE
     Route: 065

REACTIONS (6)
  - Therapeutic response shortened [Unknown]
  - Ankylosing spondylitis [Unknown]
  - Drug level decreased [Unknown]
  - Inflammatory bowel disease [Unknown]
  - Stress [Recovering/Resolving]
  - Transaminases increased [Unknown]
